FAERS Safety Report 18153008 (Version 7)
Quarter: 2021Q1

REPORT INFORMATION
  Report Type: Report from Study
  Country: US (occurrence: US)
  Receive Date: 20200814
  Receipt Date: 20210106
  Transmission Date: 20210419
  Serious: Yes (Death, Life-Threatening, Hospitalization, Other)
  Sender: FDA-Public Use
  Company Number: US-GILEAD-2020-0486994

PATIENT
  Age: 43 Year
  Sex: Male
  Weight: 83 kg

DRUGS (69)
  1. KEPPRA [Concomitant]
     Active Substance: LEVETIRACETAM
     Dosage: 1000 MG/100 ML NS IVPB 1000, MG, TWICE DAILY
     Route: 042
     Dates: start: 20200801, end: 20200806
  2. ALLOPURINOL. [Concomitant]
     Active Substance: ALLOPURINOL
     Dosage: UNK
     Dates: start: 20200806
  3. ONDANSETRON [Concomitant]
     Active Substance: ONDANSETRON
     Dosage: 16,MG,ONCE
     Route: 042
     Dates: start: 20200719, end: 20200719
  4. POTASSIUM CHLORIDE. [Concomitant]
     Active Substance: POTASSIUM CHLORIDE
     Dosage: 40,OTHER,ONCE
     Route: 050
     Dates: start: 20200806, end: 20200806
  5. TYLENOL [Concomitant]
     Active Substance: ACETAMINOPHEN
     Dosage: 650,MG,ONCE
     Route: 048
     Dates: start: 20200722, end: 20200722
  6. CELEXA [Concomitant]
     Active Substance: CITALOPRAM HYDROBROMIDE
     Dosage: 20,MG,DAILY
     Route: 048
     Dates: start: 20200723, end: 20200727
  7. CELEXA [Concomitant]
     Active Substance: CITALOPRAM HYDROBROMIDE
     Dosage: 20,MG,DAILY
     Route: 050
     Dates: start: 20200728, end: 20200811
  8. ATIVAN [Concomitant]
     Active Substance: LORAZEPAM
     Dosage: 1,MG,ONCE
     Route: 042
     Dates: start: 20200726, end: 20200726
  9. ATIVAN [Concomitant]
     Active Substance: LORAZEPAM
     Dosage: 2,MG,TWICE DAILY
     Route: 042
     Dates: start: 20200726, end: 20200726
  10. KEPPRA [Concomitant]
     Active Substance: LEVETIRACETAM
     Dosage: DOSE ADJUSTED TO UNKNOWN DOSEUNK
     Dates: start: 20200727
  11. LORAZEPAM. [Concomitant]
     Active Substance: LORAZEPAM
     Dosage: 1,MG,AS NECESSARY
     Route: 048
     Dates: start: 20200618, end: 20200720
  12. ATOVAQUONE. [Concomitant]
     Active Substance: ATOVAQUONE
     Dosage: 1500,UG,DAILY
     Route: 048
     Dates: start: 20200716, end: 20200720
  13. NORMAL SALINE [Concomitant]
     Active Substance: SODIUM CHLORIDE
     Dosage: 20?125,OTHER,CONTINUOUS
     Route: 042
     Dates: start: 20200723, end: 20200726
  14. DIPHENHYDRAMINE. [Concomitant]
     Active Substance: DIPHENHYDRAMINE
     Dosage: 12.5,MG,ONCE
     Route: 042
     Dates: start: 20200722, end: 20200722
  15. ATIVAN [Concomitant]
     Active Substance: LORAZEPAM
     Dosage: 0.5,MG,AS NECESSARY
     Route: 042
     Dates: start: 20200722, end: 20200726
  16. ATIVAN [Concomitant]
     Active Substance: LORAZEPAM
     Dosage: 0.5,MG,ONCE
     Route: 048
     Dates: start: 20200723, end: 20200723
  17. NEUPOGEN [Concomitant]
     Active Substance: FILGRASTIM
     Dosage: 600,UG,DAILY
     Route: 058
     Dates: start: 20200723, end: 20200728
  18. ROXICODONE [Concomitant]
     Active Substance: OXYCODONE HYDROCHLORIDE
     Dosage: 10,MG,AS NECESSARY
     Route: 048
     Dates: start: 20200725, end: 20200726
  19. KTE?X19 [Suspect]
     Active Substance: AXICABTAGENE CILOLEUCEL
     Indication: MANTLE CELL LYMPHOMA
     Dosage: 68 (UNITS NOT PROVIDED)
     Route: 042
     Dates: start: 20200722, end: 20200722
  20. CYCLOPHOSPHAMIDE. [Suspect]
     Active Substance: CYCLOPHOSPHAMIDE
     Indication: BONE MARROW CONDITIONING REGIMEN
     Dosage: 500 (UNITS NOT PROVIDED)
     Route: 042
     Dates: start: 20200717, end: 20200719
  21. KEPPRA [Concomitant]
     Active Substance: LEVETIRACETAM
     Dosage: 2000 MG IN NS 250 ML IV 2000,MG,ONCE
     Route: 042
     Dates: start: 20200727, end: 20200727
  22. POTASSIUM CHLORIDE. [Concomitant]
     Active Substance: POTASSIUM CHLORIDE
     Dosage: 20 MEQ/L 20?125,OTHER,CONTINUOUS
     Route: 042
     Dates: start: 20200721, end: 20200726
  23. POTASSIUM CHLORIDE. [Concomitant]
     Active Substance: POTASSIUM CHLORIDE
     Dosage: 20 MEQ/50 ML WATER IVPB 20,OTHER,OTHER
     Route: 042
     Dates: start: 20200728, end: 20200728
  24. POTASSIUM CHLORIDE. [Concomitant]
     Active Substance: POTASSIUM CHLORIDE
     Dosage: 40,OTHER,ONCE
     Route: 050
     Dates: start: 20200802, end: 20200802
  25. BUSPAR [Concomitant]
     Active Substance: BUSPIRONE HYDROCHLORIDE
     Dosage: 10,MG,TWICE DAILY
     Route: 048
     Dates: start: 20200721, end: 20200727
  26. PEPCID [Concomitant]
     Active Substance: FAMOTIDINE
     Dosage: 20,MG,DAILY
     Route: 048
     Dates: start: 20200722, end: 20200726
  27. CLARITIN [Concomitant]
     Active Substance: LORATADINE
     Dosage: 10,MG,DAILY
     Route: 048
     Dates: start: 20200722, end: 20200727
  28. NORCO [Concomitant]
     Active Substance: ACETAMINOPHEN\HYDROCODONE BITARTRATE
     Dosage: 5?325,MG,ONCE
     Route: 048
     Dates: start: 20200718, end: 20200718
  29. POTASSIUM CHLORIDE. [Concomitant]
     Active Substance: POTASSIUM CHLORIDE
     Dosage: 16,MG,ONCE
     Route: 042
     Dates: start: 20200719, end: 20200719
  30. KEPPRA [Concomitant]
     Active Substance: LEVETIRACETAM
     Dosage: 1500 MG/100 ML NS IVPB 1500,MG,TWICE DAILY
     Route: 042
     Dates: start: 20200726, end: 20200726
  31. POTASSIUM CHLORIDE. [Concomitant]
     Active Substance: POTASSIUM CHLORIDE
     Dosage: 20 MEQ/50 ML WATER IVPB PREMIX 20,OTHER,AS NECESSARY
     Route: 042
     Dates: start: 20200722, end: 20200811
  32. ACYCLOVIR [ACICLOVIR] [Concomitant]
     Active Substance: ACYCLOVIR
     Dosage: 800,MG,TWICE DAILY
     Route: 048
     Dates: start: 20200716, end: 20200726
  33. COMPAZINE [PROCHLORPERAZINE EDISYLATE] [Concomitant]
     Active Substance: PROCHLORPERAZINE EDISYLATE
     Dosage: 5,MG,FOUR TIMES DAILY
     Route: 042
     Dates: start: 20200723, end: 20200811
  34. ROXICODONE [Concomitant]
     Active Substance: OXYCODONE HYDROCHLORIDE
     Dosage: 5,MG,TWICE DAILY
     Route: 048
     Dates: start: 20200725, end: 20200725
  35. KEPPRA [Concomitant]
     Active Substance: LEVETIRACETAM
     Dosage: 500,MG,TWICE DAILY
     Route: 048
     Dates: start: 20200721, end: 20200726
  36. KEPPRA [Concomitant]
     Active Substance: LEVETIRACETAM
     Dosage: 1000 MG/100 ML NS IVPB 1000,MG,ONCE
     Route: 042
     Dates: start: 20200726, end: 20200726
  37. KEPPRA [Concomitant]
     Active Substance: LEVETIRACETAM
     Dosage: 2000 MG IN NS 250 ML, 2000,MG,TWICE DAILY
     Route: 042
     Dates: start: 20200727, end: 20200727
  38. KEPPRA [Concomitant]
     Active Substance: LEVETIRACETAM
     Dosage: 1000,MG,TWICE DAILY
     Route: 042
     Dates: start: 20200806, end: 20200811
  39. ALLOPURINOL. [Concomitant]
     Active Substance: ALLOPURINOL
     Dosage: 300,MG,DAILY
     Route: 048
     Dates: start: 20200717, end: 20200728
  40. ONDANSETRON [Concomitant]
     Active Substance: ONDANSETRON
     Dosage: 16,MG,ONCE
     Route: 042
     Dates: start: 20200717, end: 20200718
  41. POTASSIUM CHLORIDE. [Concomitant]
     Active Substance: POTASSIUM CHLORIDE
     Dosage: 10 MEQ/100 ML WATER IVPB 10,OTHER,AS NECESSARY
     Route: 042
     Dates: start: 20200723, end: 20200811
  42. POTASSIUM CHLORIDE. [Concomitant]
     Active Substance: POTASSIUM CHLORIDE
     Dosage: 10?60,OTHER,ONCE
     Route: 050
     Dates: start: 20200803, end: 20200803
  43. POTASSIUM CHLORIDE. [Concomitant]
     Active Substance: POTASSIUM CHLORIDE
     Dosage: 40,OTHER,ONCE
     Route: 050
     Dates: start: 20200804, end: 20200804
  44. ATIVAN [Concomitant]
     Active Substance: LORAZEPAM
     Dosage: 0.5,MG,ONCE
     Route: 042
     Dates: start: 20200725, end: 20200725
  45. ATIVAN [Concomitant]
     Active Substance: LORAZEPAM
     Dosage: 2,MG,ONCE
     Route: 042
     Dates: start: 20200731, end: 20200731
  46. FAMOTIDINE. [Concomitant]
     Active Substance: FAMOTIDINE
     Dosage: 20,MG,DAILY
     Route: 048
     Dates: start: 20200723, end: 20200726
  47. ACTEMRA [Concomitant]
     Active Substance: TOCILIZUMAB
     Dosage: 800,MG,ONCE
     Route: 042
     Dates: start: 20200726, end: 20200726
  48. KEPPRA [Concomitant]
     Active Substance: LEVETIRACETAM
     Dosage: 1000 MG/100 ML NS, 1000,MG,TWICE DAILY
     Route: 042
     Dates: start: 20200727, end: 20200727
  49. EMEND (FOSAPREPITANT DIMEGLUMINE) [Concomitant]
     Active Substance: FOSAPREPITANT DIMEGLUMINE
     Dosage: 150,MG,ONCE
     Route: 042
     Dates: start: 20200717, end: 20200717
  50. ONDANSETRON [Concomitant]
     Active Substance: ONDANSETRON
     Dosage: 16 MG IN D5W 50 ML IVPB; 200,OTHER,DAILY
     Route: 042
     Dates: start: 20200721, end: 20200723
  51. ONDANSETRON [Concomitant]
     Active Substance: ONDANSETRON
     Dosage: 8,MG,AS NECESSARY
     Route: 042
     Dates: start: 20200724, end: 20200726
  52. POTASSIUM CHLORIDE. [Concomitant]
     Active Substance: POTASSIUM CHLORIDE
     Dosage: 10?60,OTHER,AS NECESSARY
     Route: 050
     Dates: start: 20200804, end: 20200808
  53. BUSPAR [Concomitant]
     Active Substance: BUSPIRONE HYDROCHLORIDE
     Dosage: 10,MG,TWICE DAILY
     Route: 050
     Dates: start: 20200727, end: 20200811
  54. NORMAL SALINE [Concomitant]
     Active Substance: SODIUM CHLORIDE
     Dosage: 20?125,OTHER,CONTINUOUS
     Route: 042
     Dates: start: 20200721, end: 20200726
  55. FAMOTIDINE. [Concomitant]
     Active Substance: FAMOTIDINE
     Dosage: 20,MG,TWICE DAILY
     Route: 042
     Dates: start: 20200726, end: 20200811
  56. FLUDARABINE [Suspect]
     Active Substance: FLUDARABINE PHOSPHATE
     Indication: BONE MARROW CONDITIONING REGIMEN
     Dosage: 30 (UNITS NOT PROVIDED)
     Route: 042
     Dates: start: 20200717, end: 20200719
  57. ACTEMRA [Concomitant]
     Active Substance: TOCILIZUMAB
     Dosage: 800,MG,ONCE
     Route: 042
     Dates: start: 20200724, end: 20200724
  58. ACTEMRA [Concomitant]
     Active Substance: TOCILIZUMAB
     Dosage: 800,MG,ONCE
     Route: 042
     Dates: start: 20200726, end: 20200726
  59. DEXAMETHASONE. [Concomitant]
     Active Substance: DEXAMETHASONE
     Dosage: 10,MG,ONCE
     Route: 042
     Dates: start: 20200720, end: 20200720
  60. KEPPRA [Concomitant]
     Active Substance: LEVETIRACETAM
     Dosage: DOSE ADJUSTED TO UNKNOWN DOSE
     Dates: start: 20200726
  61. ALLOPURINOL. [Concomitant]
     Active Substance: ALLOPURINOL
     Indication: PROPHYLAXIS
     Dosage: 300,MG,DAILY
     Route: 048
     Dates: start: 20200721, end: 20200728
  62. ONDANSETRON [Concomitant]
     Active Substance: ONDANSETRON
     Dosage: 8,MG,AS NECESSARY
     Route: 048
     Dates: start: 20200719, end: 20200720
  63. POTASSIUM CHLORIDE. [Concomitant]
     Active Substance: POTASSIUM CHLORIDE
     Dosage: 10 MEQ/100 ML WATER IVPB (PREMIX) 10,OTHER,AS NECESSARY
     Route: 042
     Dates: start: 20200722, end: 20200811
  64. POTASSIUM CHLORIDE. [Concomitant]
     Active Substance: POTASSIUM CHLORIDE
     Dosage: 20 MEQ/L
     Route: 042
     Dates: start: 20200723, end: 20200726
  65. POTASSIUM CHLORIDE. [Concomitant]
     Active Substance: POTASSIUM CHLORIDE
     Dosage: 20 MEQ/50 ML WATER IVPB 20,OTHER,AS NECESSARY
     Route: 042
     Dates: start: 20200723, end: 20200811
  66. TYLENOL [Concomitant]
     Active Substance: ACETAMINOPHEN
     Dosage: 650,MG,AS NECESSARY
     Route: 048
     Dates: start: 20200723, end: 20200726
  67. TYLENOL [Concomitant]
     Active Substance: ACETAMINOPHEN
     Dosage: 1000,MG,ONCE
     Route: 048
     Dates: start: 20200725, end: 20200725
  68. CELEXA [Concomitant]
     Active Substance: CITALOPRAM HYDROBROMIDE
     Dosage: 20,MG,DAILY
     Route: 048
     Dates: start: 20200722, end: 20200727
  69. CLARITIN [Concomitant]
     Active Substance: LORATADINE
     Dosage: 10,MG,DAILY
     Dates: start: 20200728, end: 20200811

REACTIONS (7)
  - Acute kidney injury [Recovered/Resolved]
  - Encephalopathy [Recovered/Resolved]
  - Seizure [Recovered/Resolved]
  - Candida infection [Recovered/Resolved]
  - Multiple organ dysfunction syndrome [Fatal]
  - Cardiac arrest [Recovered/Resolved]
  - Seizure [Recovered/Resolved]

NARRATIVE: CASE EVENT DATE: 20200726
